FAERS Safety Report 7440529-5 (Version None)
Quarter: 2011Q2

REPORT INFORMATION
  Report Type: 
  Country: None (occurrence: None)
  Receive Date: 20110427
  Receipt Date: 20110422
  Transmission Date: 20111010
  Serious: Yes (Hospitalization)
  Sender: FDA-Public Use
  Company Number: A0886569A

PATIENT
  Age: 43 Year
  Sex: Female
  Weight: 106.8 kg

DRUGS (7)
  1. DIOVAN [Concomitant]
  2. AVANDIA [Suspect]
     Dosage: 8MG PER DAY
     Route: 048
     Dates: start: 20000110, end: 20030201
  3. GLUCOTROL [Concomitant]
  4. ATACAND [Concomitant]
  5. PRILOSEC [Concomitant]
  6. GLYBURIDE [Concomitant]
  7. COVERA-HS [Concomitant]

REACTIONS (4)
  - MYOCARDIAL INFARCTION [None]
  - CARDIAC FAILURE CONGESTIVE [None]
  - CORONARY ARTERY DISEASE [None]
  - ISCHAEMIC CARDIOMYOPATHY [None]
